FAERS Safety Report 15449843 (Version 1)
Quarter: 2018Q4

REPORT INFORMATION
  Report Type: Report from Study
  Country: MX (occurrence: MX)
  Receive Date: 20181001
  Receipt Date: 20181001
  Transmission Date: 20190204
  Serious: Yes (Hospitalization, Other)
  Sender: FDA-Public Use
  Company Number: MX-UCBSA-2018043023

PATIENT
  Age: 0 Year
  Sex: Male

DRUGS (3)
  1. LEVETIRACETAM. [Suspect]
     Active Substance: LEVETIRACETAM
     Indication: EPILEPSY
     Dosage: CHANGES WERE PERFORMED ACCORDING TO THE PATIENT?S GROWTH
     Route: 048
     Dates: start: 20180331, end: 2018
  2. PHENOBARBITAL. [Concomitant]
     Active Substance: PHENOBARBITAL
     Indication: EPILEPSY
     Dosage: UNK
     Dates: start: 2018, end: 2018
  3. LEVETIRACETAM. [Suspect]
     Active Substance: LEVETIRACETAM
     Dosage: UNK
     Route: 048
     Dates: start: 2018

REACTIONS (5)
  - Brain injury [Unknown]
  - Off label use [Unknown]
  - Seizure [Not Recovered/Not Resolved]
  - Wrong technique in product usage process [Unknown]
  - Petit mal epilepsy [Unknown]

NARRATIVE: CASE EVENT DATE: 2018
